FAERS Safety Report 22641817 (Version 1)
Quarter: 2023Q2

REPORT INFORMATION
  Report Type: Spontaneous
  Country: FR (occurrence: FR)
  Receive Date: 20230626
  Receipt Date: 20230626
  Transmission Date: 20230721
  Serious: Yes (Hospitalization)
  Sender: FDA-Public Use
  Company Number: None

PATIENT
  Age: 0 Day
  Sex: Female

DRUGS (1)
  1. PROPRANOLOL [Suspect]
     Active Substance: PROPRANOLOL HYDROCHLORIDE
     Indication: Tachycardia
     Dosage: 40 MILLIGRAM DAILY; 20 MG MORNING AND EVENING,
     Route: 064
     Dates: start: 20210201, end: 20210423

REACTIONS (1)
  - Bradycardia neonatal [Recovered/Resolved]

NARRATIVE: CASE EVENT DATE: 20210420
